FAERS Safety Report 10213591 (Version 1)
Quarter: 2014Q2

REPORT INFORMATION
  Report Type: Spontaneous
  Country: US (occurrence: None)
  Receive Date: 20140530
  Receipt Date: 20140530
  Transmission Date: 20141212
  Serious: Yes (Hospitalization)
  Sender: FDA-Public Use
  Company Number: UTC-046932

PATIENT
  Age: 73 Year
  Sex: Female
  Weight: 64.4 kg

DRUGS (2)
  1. TYVASO (TREPROSTINIL SODIUM (INHALED)) INHALATION GAS, .6MG/ML [Suspect]
     Indication: PULMONARY ARTERIAL HYPERTENSION
     Route: 055
     Dates: start: 20140111
  2. WARFARIN (WARFARIN) [Concomitant]

REACTIONS (4)
  - Fluid retention [None]
  - Asthenia [None]
  - Hyponatraemia [None]
  - Oedema [None]
